FAERS Safety Report 6038395-8 (Version None)
Quarter: 2009Q1

REPORT INFORMATION
  Report Type: 
  Country: None (occurrence: None)
  Receive Date: 20090115
  Receipt Date: 20081223
  Transmission Date: 20090719
  Serious: No
  Sender: FDA-Public Use
  Company Number: US-BAYER-200814424BCC

PATIENT
  Sex: Female

DRUGS (5)
  1. ALEVE (CAPLET) [Suspect]
     Indication: ARTHRALGIA
  2. ALEVE (CAPLET) [Suspect]
     Dosage: UNIT DOSE: 220 MG
     Dates: start: 20081101
  3. MULTI-VITAMINS [Concomitant]
  4. HORMONE REPLACEMENT THERAPY [Concomitant]
  5. ACE INHIBITOR [Concomitant]

REACTIONS (1)
  - IRRITABILITY [None]
